FAERS Safety Report 8790943 (Version 1)
Quarter: 2012Q4

REPORT INFORMATION
  Report Type: Spontaneous
  Country: US (occurrence: None)
  Receive Date: 20120913
  Receipt Date: 20120913
  Transmission Date: 20130627
  Serious: No
  Sender: FDA-Public Use
  Company Number: None

PATIENT
  Age: 69 Year
  Sex: Male
  Weight: 136.99 kg

DRUGS (2)
  1. METOPROLOL [Suspect]
     Indication: HYPERTENSION
     Dosage: 50 mg per day po
     Route: 048
     Dates: start: 20120801
  2. METOPROLOL [Suspect]
     Indication: CONGESTIVE HEART FAILURE
     Dosage: 50 mg per day po
     Route: 048
     Dates: start: 20120801

REACTIONS (5)
  - Weight increased [None]
  - Ventricular extrasystoles [None]
  - Dyspnoea [None]
  - Diplopia [None]
  - Drug ineffective [None]
